FAERS Safety Report 17534806 (Version 1)
Quarter: 2020Q1

REPORT INFORMATION
  Report Type: Report from Study
  Country: US (occurrence: US)
  Receive Date: 20200312
  Receipt Date: 20200312
  Transmission Date: 20200409
  Serious: Yes (Hospitalization)
  Sender: FDA-Public Use
  Company Number: US-TAIHO ONCOLOGY  INC-EU-2020-00832

PATIENT
  Age: 68 Year
  Sex: Female

DRUGS (7)
  1. CARVEDILOL. [Concomitant]
     Active Substance: CARVEDILOL
  2. LONSURF [Suspect]
     Active Substance: TIPIRACIL HYDROCHLORIDE\TRIFLURIDINE
     Indication: RECTAL CANCER
     Dosage: UNKNOWN CYCLE
     Route: 048
     Dates: start: 20191207
  3. OXYCODONE [Concomitant]
     Active Substance: OXYCODONE
  4. FENTANYL. [Concomitant]
     Active Substance: FENTANYL
  5. CEFUROXIME. [Concomitant]
     Active Substance: CEFUROXIME
  6. LISINOPRIL. [Concomitant]
     Active Substance: LISINOPRIL
  7. XARELTO [Concomitant]
     Active Substance: RIVAROXABAN

REACTIONS (3)
  - Blood iron decreased [Not Recovered/Not Resolved]
  - Feeling abnormal [Not Recovered/Not Resolved]
  - Dehydration [Not Recovered/Not Resolved]

NARRATIVE: CASE EVENT DATE: 20200302
